FAERS Safety Report 5721573-2 (Version None)
Quarter: 2008Q2

REPORT INFORMATION
  Report Type: 
  Country: None (occurrence: None)
  Receive Date: 20080429
  Receipt Date: 20070305
  Transmission Date: 20081010
  Serious: No
  Sender: FDA-Public Use
  Company Number: US-ASTRAZENECA-2007UW04214

PATIENT
  Age: 54 Year
  Sex: Male
  Weight: 85.3 kg

DRUGS (3)
  1. NEXIUM [Suspect]
     Indication: ABDOMINAL PAIN UPPER
     Route: 048
  2. FIBER-CON [Concomitant]
  3. PAIN-FORTE [Concomitant]

REACTIONS (1)
  - BURNING SENSATION [None]
